FAERS Safety Report 8798773 (Version 3)
Quarter: 2012Q4

REPORT INFORMATION
  Report Type: 
  Country: US (occurrence: US)
  Receive Date: 20120920
  Receipt Date: 20121008
  Transmission Date: 20130627
  Serious: Yes (Other)
  Sender: FDA-Public Use
  Company Number: US-ROCHE-1109793

PATIENT
  Age: 42 Year
  Sex: Female
  Weight: 79.9 kg

DRUGS (6)
  1. XOLAIR [Suspect]
     Indication: ASTHMA
     Route: 058
     Dates: start: 20120620, end: 20120823
  2. FLUTICASONE [Concomitant]
     Indication: RHINITIS ALLERGIC
     Route: 065
  3. CLARITIN [Concomitant]
     Indication: SINUSITIS
     Dosage: as necessary
     Route: 048
  4. SINGULAIR [Concomitant]
     Indication: ASTHMA
     Route: 048
     Dates: start: 20120508
  5. SINGULAIR [Concomitant]
     Indication: RHINITIS ALLERGIC
  6. ALVESCO [Concomitant]
     Indication: ASTHMA
     Dosage: Route, HFA
     Route: 065
     Dates: start: 20120515

REACTIONS (3)
  - Chest discomfort [Recovered/Resolved]
  - Cough [Recovered/Resolved]
  - Nausea [Recovered/Resolved]
